FAERS Safety Report 25029274 (Version 1)
Quarter: 2025Q1

REPORT INFORMATION
  Report Type: Spontaneous
  Country: JP (occurrence: JP)
  Receive Date: 20250303
  Receipt Date: 20250303
  Transmission Date: 20250409
  Serious: Yes (Hospitalization)
  Sender: GALDERMA
  Company Number: JP-GALDERMA-JP2025002697

PATIENT

DRUGS (2)
  1. NEMOLIZUMAB [Suspect]
     Active Substance: NEMOLIZUMAB
     Indication: Product used for unknown indication
     Route: 058
     Dates: start: 20240826, end: 20240826
  2. NEMOLIZUMAB [Suspect]
     Active Substance: NEMOLIZUMAB
     Route: 058

REACTIONS (2)
  - Pyrexia [Unknown]
  - Cellulitis [Unknown]

NARRATIVE: CASE EVENT DATE: 20250201
